FAERS Safety Report 13318736 (Version 2)
Quarter: 2017Q1

REPORT INFORMATION
  Report Type: Spontaneous
  Country: IT (occurrence: IT)
  Receive Date: 20170310
  Receipt Date: 20170321
  Transmission Date: 20170428
  Serious: Yes (Hospitalization, Other)
  Sender: FDA-Public Use
  Company Number: IT-JNJFOC-20170308988

PATIENT

DRUGS (4)
  1. SOFOSBUVIR [Suspect]
     Active Substance: SOFOSBUVIR
     Indication: HEPATITIS C
     Dosage: FOR 12 WEEKS
     Route: 048
  2. SIMEPREVIR [Suspect]
     Active Substance: SIMEPREVIR
     Indication: HEPATITIS C
     Dosage: FOR 12 WEEKS
     Route: 048
  3. RIBAVIRIN. [Suspect]
     Active Substance: RIBAVIRIN
     Indication: HEPATITIS C
     Dosage: FOR 12 WEEKS; DOSE DEPENDS ON BODY WEIGHT
     Route: 048
  4. RIBAVIRIN. [Suspect]
     Active Substance: RIBAVIRIN
     Indication: HEPATITIS C
     Route: 048

REACTIONS (19)
  - Headache [Unknown]
  - Gastrointestinal haemorrhage [Unknown]
  - Biliary colic [Unknown]
  - Insomnia [Unknown]
  - Dizziness [Unknown]
  - Hepatitis C [Unknown]
  - Adverse reaction [Unknown]
  - Remission not achieved [Unknown]
  - Rash [Unknown]
  - Gastrointestinal disorder [Unknown]
  - Photosensitivity reaction [Unknown]
  - Anaemia [Unknown]
  - Affective disorder [Unknown]
  - Off label use [Unknown]
  - Thrombocytopenia [Unknown]
  - Hyperbilirubinaemia [Unknown]
  - Product use issue [Unknown]
  - Fatigue [Unknown]
  - Pruritus [Unknown]
